FAERS Safety Report 8839995 (Version 1)
Quarter: 2012Q4

REPORT INFORMATION
  Report Type: Spontaneous
  Country: US (occurrence: None)
  Receive Date: 20121012
  Receipt Date: 20121012
  Transmission Date: 20130627
  Serious: Yes (Other)
  Sender: FDA-Public Use
  Company Number: None

PATIENT
  Sex: Female
  Weight: 44 kg

DRUGS (1)
  1. CLARAVIS [Suspect]
     Indication: ACNE
     Route: 048
     Dates: start: 20111107, end: 20120407

REACTIONS (10)
  - Cataract [None]
  - Dry skin [None]
  - Hair texture abnormal [None]
  - Myalgia [None]
  - Arthralgia [None]
  - Muscular weakness [None]
  - Arthropathy [None]
  - Mass [None]
  - Skin swelling [None]
  - Skin disorder [None]
